FAERS Safety Report 10540033 (Version 1)
Quarter: 2014Q4

REPORT INFORMATION
  Report Type: Spontaneous
  Country: US (occurrence: None)
  Receive Date: 20141022
  Receipt Date: 20141022
  Transmission Date: 20150529
  Serious: Yes (Disabling)
  Sender: FDA-Public Use
  Company Number: DEP_02325_2014

PATIENT
  Sex: Male

DRUGS (8)
  1. GRALISE [Suspect]
     Active Substance: GABAPENTIN
     Indication: PAIN
     Dosage: (ONE IN MORNING, ONE AFTER LUNCH AND ONE BEFORE DINNER)
     Dates: start: 201405
  2. OXYCODONE [Concomitant]
     Active Substance: OXYCODONE
  3. TYLENOL EXTRA STRENGTH [Concomitant]
     Active Substance: ACETAMINOPHEN
  4. METOPROLOL [Concomitant]
     Active Substance: METOPROLOL
  5. VITAMIN C [Concomitant]
     Active Substance: ASCORBIC ACID
  6. METAMUCIL [Concomitant]
     Active Substance: PLANTAGO SEED
  7. ALPRAZOLAM. [Concomitant]
     Active Substance: ALPRAZOLAM
  8. GRALISE [Suspect]
     Active Substance: GABAPENTIN
     Indication: OFF LABEL USE
     Dosage: (ONE IN MORNING, ONE AFTER LUNCH AND ONE BEFORE DINNER)
     Dates: start: 201405

REACTIONS (3)
  - Walking aid user [None]
  - Fall [None]
  - Pain [None]

NARRATIVE: CASE EVENT DATE: 201405
